FAERS Safety Report 4399444-6 (Version None)
Quarter: 2004Q3

REPORT INFORMATION
  Report Type: 
  Country: None (occurrence: None)
  Receive Date: 20040712
  Receipt Date: 20040701
  Transmission Date: 20050211
  Serious: Yes (Hospitalization)
  Sender: FDA-Public Use
  Company Number: 2004UW13713

PATIENT
  Age: 57 Year
  Sex: Female

DRUGS (4)
  1. ROSUVASTATIN [Suspect]
     Indication: HYPERLIPIDAEMIA
     Dosage: 10 MG QD PO
     Route: 048
     Dates: start: 20040513
  2. AVALIDE [Suspect]
  3. K-DUR 10 [Suspect]
  4. ALEVE [Suspect]

REACTIONS (4)
  - DERMATITIS EXFOLIATIVE [None]
  - DRUG INTERACTION [None]
  - SHOCK [None]
  - STEVENS-JOHNSON SYNDROME [None]
